FAERS Safety Report 6713876-X (Version None)
Quarter: 2010Q2

REPORT INFORMATION
  Report Type: 
  Country: None (occurrence: None)
  Receive Date: 20100506
  Receipt Date: 20100504
  Transmission Date: 20101027
  Serious: Yes (Hospitalization, Other)
  Sender: FDA-Public Use
  Company Number: JP-SANOFI-AVENTIS-2010SA025691

PATIENT
  Age: 58 Year
  Sex: Male

DRUGS (11)
  1. ELPLAT [Suspect]
     Indication: RECTAL CANCER METASTATIC
     Route: 041
     Dates: start: 20070726, end: 20070726
  2. ELPLAT [Suspect]
     Route: 041
     Dates: start: 20070927, end: 20070927
  3. ISOVORIN [Suspect]
     Indication: RECTAL CANCER METASTATIC
     Route: 041
     Dates: start: 20070726, end: 20070726
  4. ISOVORIN [Suspect]
     Route: 041
     Dates: start: 20070907, end: 20070907
  5. AVASTIN [Suspect]
     Indication: RECTAL CANCER METASTATIC
     Route: 041
     Dates: start: 20070726, end: 20070726
  6. AVASTIN [Suspect]
     Route: 041
  7. IRINOTECAN HYDROCHLORIDE [Concomitant]
  8. FLUOROURACIL [Concomitant]
     Dates: start: 20070726, end: 20070726
  9. FLUOROURACIL [Concomitant]
     Dates: start: 20070927, end: 20070927
  10. CANDESARTAN CILEXETIL [Concomitant]
  11. CALCIUM LEVOFOLINATE [Concomitant]

REACTIONS (3)
  - ANAPHYLACTIC SHOCK [None]
  - VENOUS THROMBOSIS [None]
  - WOUND DECOMPOSITION [None]
